FAERS Safety Report 10855604 (Version 1)
Quarter: 2015Q1

REPORT INFORMATION
  Report Type: Spontaneous
  Country: US (occurrence: None)
  Receive Date: 20150218
  Receipt Date: 20150218
  Transmission Date: 20150721
  Serious: Yes (Death)
  Sender: FDA-Public Use
  Company Number: None

PATIENT
  Age: 87 Year
  Sex: Male
  Weight: 64 kg

DRUGS (1)
  1. WARFARIN 5 MG [Suspect]
     Active Substance: WARFARIN
     Indication: ATRIAL FIBRILLATION
     Dosage: YEARS VARIES QD ORAL
     Route: 048

REACTIONS (6)
  - Subdural haematoma [None]
  - Fall [None]
  - Agitation [None]
  - Post procedural complication [None]
  - Tachycardia [None]
  - International normalised ratio decreased [None]

NARRATIVE: CASE EVENT DATE: 20150103
